FAERS Safety Report 9052579 (Version 1)
Quarter: 2013Q1

REPORT INFORMATION
  Report Type: Spontaneous
  Country: US (occurrence: US)
  Receive Date: 20130207
  Receipt Date: 20130207
  Transmission Date: 20140127
  Serious: No
  Sender: FDA-Public Use
  Company Number: US-TEVA-385016USA

PATIENT
  Sex: Female
  Weight: 90.8 kg

DRUGS (3)
  1. AZILECT [Suspect]
     Indication: PARKINSON^S DISEASE
     Dosage: 1 MILLIGRAM DAILY;
     Route: 048
     Dates: start: 201212
  2. PRISTIQ [Concomitant]
     Indication: DEPRESSION
     Route: 048
  3. CARBIDOPA W/LEVODOPA [Concomitant]
     Indication: PARKINSON^S DISEASE
     Route: 048

REACTIONS (3)
  - Dry mouth [Not Recovered/Not Resolved]
  - Constipation [Not Recovered/Not Resolved]
  - Feeling jittery [Not Recovered/Not Resolved]
